FAERS Safety Report 17071115 (Version 1)
Quarter: 2019Q4

REPORT INFORMATION
  Report Type: Spontaneous
  Country: US (occurrence: US)
  Receive Date: 20191125
  Receipt Date: 20191125
  Transmission Date: 20200122
  Serious: No
  Sender: FDA-Public Use
  Company Number: US-PFIZER INC-2019457483

PATIENT
  Age: 79 Year
  Sex: Female
  Weight: 51.7 kg

DRUGS (3)
  1. IBRANCE [Suspect]
     Active Substance: PALBOCICLIB
     Indication: BREAST CANCER FEMALE
     Dosage: 125 MG, CYCLIC (DAILY FOR 21 DAYS- OFF FOR 7)
     Dates: start: 20181228
  2. IBRANCE [Suspect]
     Active Substance: PALBOCICLIB
     Dosage: 100 MG, UNK
     Dates: end: 20190915
  3. ANASTROZOLE. [Concomitant]
     Active Substance: ANASTROZOLE
     Dosage: 1 MG, UNK (1 MG TAB ZYD)
     Dates: start: 201809

REACTIONS (2)
  - White blood cell count decreased [Recovered/Resolved]
  - Neoplasm progression [Unknown]
